FAERS Safety Report 8855912 (Version 1)
Quarter: 2012Q4

REPORT INFORMATION
  Report Type: 
  Country: US (occurrence: US)
  Receive Date: 20121023
  Receipt Date: 20121023
  Transmission Date: 20130627
  Serious: No
  Sender: FDA-Public Use
  Company Number: US-AMGEN-USASP2012058807

PATIENT
  Age: 58 Year
  Sex: Female
  Weight: 58.96 kg

DRUGS (10)
  1. ENBREL [Suspect]
     Indication: PRODUCT USED FOR UNKNOWN INDICATION
     Dosage: 50 mg, qwk
     Route: 058
  2. FOLIC ACID [Concomitant]
     Dosage: TAB
  3. FOSAMAX [Concomitant]
     Dosage: 35 mg, TAB
  4. LISINOPRIL + HIDROCLOROTIAZIDA [Concomitant]
     Dosage: 20-12.5 TAB
  5. METOPROLOL [Concomitant]
     Dosage: 25 mg, TAB
  6. SIMVASTATIN [Concomitant]
     Dosage: 5 mg, TAB
  7. VITAMIN D /00107901/ [Concomitant]
     Dosage: 400 UNK, CHW
  8. ASPIRE [Concomitant]
     Dosage: 81 mg, EC
  9. PROBIOTIC                          /06395501/ [Concomitant]
     Dosage: CAP
  10. METHOTREXATE [Concomitant]
     Dosage: UNK

REACTIONS (4)
  - Burning sensation [Recovering/Resolving]
  - Haemorrhage [Recovering/Resolving]
  - Blister [Recovering/Resolving]
  - Erythema [Recovering/Resolving]
